FAERS Safety Report 20058234 (Version 2)
Quarter: 2021Q4

REPORT INFORMATION
  Report Type: Spontaneous
  Country: US (occurrence: None)
  Receive Date: 20211111
  Receipt Date: 20211220
  Transmission Date: 20220303
  Serious: No
  Sender: FDA-Public Use
  Company Number: 2021A787507

PATIENT
  Age: 58 Year
  Sex: Female
  Weight: 53.1 kg

DRUGS (4)
  1. SYMBICORT [Suspect]
     Active Substance: BUDESONIDE\FORMOTEROL FUMARATE DIHYDRATE
     Indication: Asthma
     Dosage: PATIENT IS PRESCRIBED BUDESONIDE AND FORMOTEROL 160/4.5 MCG TWO INHALATIONS, TWICE DAILY
     Route: 055
  2. SYMBICORT [Suspect]
     Active Substance: BUDESONIDE\FORMOTEROL FUMARATE DIHYDRATE
     Indication: Emphysema
     Dosage: PATIENT IS PRESCRIBED BUDESONIDE AND FORMOTEROL 160/4.5 MCG TWO INHALATIONS, TWICE DAILY
     Route: 055
  3. SYMBICORT [Suspect]
     Active Substance: BUDESONIDE\FORMOTEROL FUMARATE DIHYDRATE
     Indication: Chronic obstructive pulmonary disease
     Dosage: PATIENT IS PRESCRIBED BUDESONIDE AND FORMOTEROL 160/4.5 MCG TWO INHALATIONS, TWICE DAILY
     Route: 055
  4. VENTOLIN [Concomitant]
     Active Substance: ALBUTEROL SULFATE

REACTIONS (4)
  - Weight decreased [Unknown]
  - Wrong technique in device usage process [Unknown]
  - Drug dose omission by device [Recovered/Resolved]
  - Device delivery system issue [Unknown]

NARRATIVE: CASE EVENT DATE: 20211001
